FAERS Safety Report 21625784 (Version 1)
Quarter: 2022Q4

REPORT INFORMATION
  Report Type: Other
  Country: US (occurrence: None)
  Receive Date: 20221122
  Receipt Date: 20221122
  Transmission Date: 20230112
  Serious: No
  Sender: FDA-Public Use
  Company Number: US-ROCHE-3222807

PATIENT
  Age: 29 Year
  Sex: Female

DRUGS (1)
  1. OCREVUS [Suspect]
     Active Substance: OCRELIZUMAB
     Indication: Relapsing multiple sclerosis
     Dosage: SECOND HALF DOSE: 23/MAY/2022?THEN 600 MG EVERY 6 MONTHS
     Route: 042
     Dates: start: 20220506

REACTIONS (1)
  - COVID-19 [Unknown]
